FAERS Safety Report 18880521 (Version 2)
Quarter: 2021Q2

REPORT INFORMATION
  Report Type: Spontaneous
  Country: US (occurrence: US)
  Receive Date: 20210211
  Receipt Date: 20210409
  Transmission Date: 20210717
  Serious: No
  Sender: FDA-Public Use
  Company Number: US-STRONGBRIDGE BIOPHARMA-2021-STR-000030

PATIENT
  Sex: Female

DRUGS (2)
  1. KEVEYIS [Suspect]
     Active Substance: DICHLORPHENAMIDE
     Dosage: 50 UNK
     Route: 048
     Dates: start: 20200926
  2. KEVEYIS [Suspect]
     Active Substance: DICHLORPHENAMIDE
     Indication: FAMILIAL PERIODIC PARALYSIS
     Dosage: 50 MG, BID
     Route: 048

REACTIONS (6)
  - Feeling abnormal [Recovering/Resolving]
  - Disease recurrence [Not Recovered/Not Resolved]
  - Product dose omission issue [Unknown]
  - Depression [Recovering/Resolving]
  - Muscular weakness [Recovering/Resolving]
  - Therapeutic product effect incomplete [Not Recovered/Not Resolved]
